FAERS Safety Report 25257593 (Version 1)
Quarter: 2025Q2

REPORT INFORMATION
  Report Type: Spontaneous
  Country: CN (occurrence: CN)
  Receive Date: 20250430
  Receipt Date: 20250430
  Transmission Date: 20250717
  Serious: Yes (Hospitalization, Other)
  Sender: SHENZHEN TECHDOW PHARMACEUTICAL
  Company Number: CN-adr44030518216-HPR2025000175

PATIENT
  Age: 73 Year
  Sex: Female
  Weight: 51 kg

DRUGS (2)
  1. ENOXAPARIN SODIUM [Suspect]
     Active Substance: ENOXAPARIN SODIUM
     Indication: Atrial fibrillation
     Dosage: 0.4ML,QD
     Dates: start: 20250305, end: 20250317
  2. RIVAROXABAN [Suspect]
     Active Substance: RIVAROXABAN
     Indication: Atrial fibrillation
     Dosage: 15MG,QD
     Dates: start: 20250317, end: 20250411

REACTIONS (1)
  - Coagulopathy [Unknown]

NARRATIVE: CASE EVENT DATE: 20250406
